FAERS Safety Report 5057919-0 (Version None)
Quarter: 2006Q3

REPORT INFORMATION
  Report Type: 
  Country: None (occurrence: None)
  Receive Date: 20060721
  Receipt Date: 20060403
  Transmission Date: 20061208
  Serious: No
  Sender: FDA-Public Use
  Company Number: US-GLAXOSMITHKLINE-A0600100A

PATIENT
  Age: 55 Year
  Sex: Male

DRUGS (4)
  1. AVANDIA [Suspect]
     Dosage: 4MG PER DAY
     Route: 048
  2. ANTIDEPRESSANT [Concomitant]
  3. AMARYL [Concomitant]
  4. METFORMIN [Concomitant]

REACTIONS (1)
  - DRUG INEFFECTIVE [None]
